FAERS Safety Report 5696386-0 (Version None)
Quarter: 2008Q2

REPORT INFORMATION
  Report Type: 
  Country: None (occurrence: None)
  Receive Date: 20080408
  Receipt Date: 20080326
  Transmission Date: 20081010
  Serious: Yes (Hospitalization, Other)
  Sender: FDA-Public Use
  Company Number: US-PFIZER INC-2008028559

PATIENT
  Sex: Female

DRUGS (7)
  1. CHANTIX [Suspect]
     Indication: SMOKING CESSATION THERAPY
  2. MERCAPTOPURINE [Concomitant]
  3. PREDNISONE [Concomitant]
  4. NEXIUM [Concomitant]
  5. COMPAZINE [Concomitant]
  6. ZOLOFT [Concomitant]
  7. XANAX [Concomitant]

REACTIONS (3)
  - COLITIS ULCERATIVE [None]
  - HAEMATOCHEZIA [None]
  - KIDNEY INFECTION [None]
